FAERS Safety Report 5195807-X (Version None)
Quarter: 2007Q1

REPORT INFORMATION
  Report Type: 
  Country: None (occurrence: None)
  Receive Date: 20070102
  Receipt Date: 20061221
  Transmission Date: 20070707
  Serious: Yes (Other)
  Sender: FDA-Public Use
  Company Number: PHEH2006US15478

PATIENT
  Sex: Female

DRUGS (2)
  1. FORADIL [Suspect]
     Dosage: UNK, UNK
  2. SPIRIVA [Concomitant]

REACTIONS (3)
  - FALL [None]
  - PHARMACEUTICAL PRODUCT COMPLAINT [None]
  - WRIST FRACTURE [None]
